FAERS Safety Report 16053146 (Version 1)
Quarter: 2019Q1

REPORT INFORMATION
  Report Type: Spontaneous
  Country: PL (occurrence: PL)
  Receive Date: 20190308
  Receipt Date: 20190308
  Transmission Date: 20190418
  Serious: Yes (Other)
  Sender: FDA-Public Use
  Company Number: PHHY2019PL048784

PATIENT
  Age: 34 Year
  Sex: Male

DRUGS (5)
  1. VINORELBINE [Suspect]
     Active Substance: VINORELBINE\VINORELBINE TARTRATE
     Indication: HODGKIN^S DISEASE
     Dosage: 20 MG/M2, UNK (ON DAY 1)
     Route: 065
     Dates: start: 201603
  2. BRENTUXIMAB VEDOTIN [Suspect]
     Active Substance: BRENTUXIMAB VEDOTIN
     Indication: HODGKIN^S DISEASE
     Dosage: 1.8 MG/M2, UNK
     Route: 065
     Dates: start: 201608, end: 201701
  3. GRANULOCYTE COLONY STIMULATING FACTOR [Suspect]
     Active Substance: GRANULOCYTE COLONY-STIMULATING FACTOR NOS
     Indication: PROPHYLAXIS
     Route: 065
  4. GEMCITABINE [Suspect]
     Active Substance: GEMCITABINE\GEMCITABINE HYDROCHLORIDE
     Indication: HODGKIN^S DISEASE
     Dosage: 800 MG/M2, UNK (ON DAY 1-4)
     Route: 065
     Dates: start: 201603
  5. IFOSFAMIDE. [Suspect]
     Active Substance: IFOSFAMIDE
     Indication: HODGKIN^S DISEASE
     Dosage: 2000 MG/M2, UNK
     Route: 065
     Dates: start: 201603

REACTIONS (5)
  - Febrile neutropenia [Unknown]
  - Product use in unapproved indication [Unknown]
  - Ejection fraction decreased [Unknown]
  - Renal impairment [Unknown]
  - Anaemia [Unknown]
